FAERS Safety Report 4404273-0 (Version None)
Quarter: 2004Q3

REPORT INFORMATION
  Report Type: 
  Country: None (occurrence: None)
  Receive Date: 20040720
  Receipt Date: 20040709
  Transmission Date: 20050211
  Serious: Yes (Hospitalization)
  Sender: FDA-Public Use
  Company Number: 2004037147

PATIENT
  Age: 72 Year
  Sex: Male
  Weight: 50 kg

DRUGS (8)
  1. ZITHROMAX [Suspect]
     Indication: INFECTION PROPHYLAXIS
     Dosage: 250 MG (250 MG, 1 IN 1 D), ORAL
     Route: 048
     Dates: start: 20040601, end: 20040601
  2. MEFENAMIC ACID [Suspect]
     Indication: PAIN
     Dosage: 250 MG (250 MG, 1 IN 1 D), ORAL
     Route: 048
     Dates: start: 20040601, end: 20040601
  3. LACTOBACILLUS BIFIDUS, LYOPHILIZED (LACTOBACILLUS BIFIDUS, LYOPHILIZED [Concomitant]
  4. EXCELASE (ENZYMES NOS) [Concomitant]
  5. PANTETHINE (PANTETHINE) [Concomitant]
  6. TIAPRIDE HYDROCHLORIDE (TIAPRIDE HYDROCHLORIDE) [Concomitant]
  7. MAGNESIUM OXIDE HEAVY (MAGNESIUM OXIDE HEAVY) [Concomitant]
  8. ACETYLSALICYLIC ACID SRT [Concomitant]

REACTIONS (1)
  - ANAPHYLACTIC SHOCK [None]
